FAERS Safety Report 23086122 (Version 1)
Quarter: 2023Q4

REPORT INFORMATION
  Report Type: Report from Study
  Country: US (occurrence: US)
  Receive Date: 20231019
  Receipt Date: 20231019
  Transmission Date: 20240109
  Serious: Yes (Other)
  Sender: FDA-Public Use
  Company Number: US-JAZZ PHARMACEUTICALS-2023-US-020028

PATIENT
  Sex: Male

DRUGS (2)
  1. SODIUM OXYBATE [Suspect]
     Active Substance: SODIUM OXYBATE
     Indication: Product used for unknown indication
     Dosage: 4.5 GRAM, BID (AT BEDTIME AND REPEAT AFTER 4 HOURS)
  2. NORCO [Suspect]
     Active Substance: ACETAMINOPHEN\HYDROCODONE BITARTRATE
     Indication: Product used for unknown indication

REACTIONS (5)
  - Hypothyroidism [Unknown]
  - Rhinitis allergic [Unknown]
  - Post polio syndrome [Unknown]
  - Constipation [Unknown]
  - Asthma [Unknown]
